FAERS Safety Report 25826435 (Version 1)
Quarter: 2025Q3

REPORT INFORMATION
  Report Type: Spontaneous
  Country: GB (occurrence: GB)
  Receive Date: 20250920
  Receipt Date: 20250920
  Transmission Date: 20251020
  Serious: Yes (Other)
  Sender: ACCORD
  Company Number: None

PATIENT
  Age: 67 Year
  Sex: Female
  Weight: 80 kg

DRUGS (1)
  1. AMITRIPTYLINE [Suspect]
     Active Substance: AMITRIPTYLINE
     Indication: Product used for unknown indication

REACTIONS (9)
  - Hyperhidrosis [Unknown]
  - Vomiting [Unknown]
  - Circulatory collapse [Unknown]
  - Panic attack [Unknown]
  - Mydriasis [Unknown]
  - Heart rate increased [Unknown]
  - Serotonin syndrome [Recovered/Resolved]
  - Blood pressure abnormal [Unknown]
  - Muscle rigidity [Unknown]
